FAERS Safety Report 8793386 (Version 2)
Quarter: 2012Q4

REPORT INFORMATION
  Report Type: 
  Country: US (occurrence: US)
  Receive Date: 20120917
  Receipt Date: 20121029
  Transmission Date: 20130627
  Serious: Yes (Other)
  Sender: FDA-Public Use
  Company Number: US-PFIZER INC-2012228004

PATIENT
  Age: 59 Year
  Sex: Female
  Weight: 81.6 kg

DRUGS (3)
  1. DEPO-MEDROL [Suspect]
     Indication: INTERVERTEBRAL DISC PROTRUSION
     Dosage: either two times in a year or three times in a year
     Dates: start: 2004, end: 20120206
  2. DEPO-MEDROL [Suspect]
     Indication: SPONDYLITIS
  3. ARMOUR THYROID [Concomitant]
     Indication: THYROID DISORDER
     Dosage: 90 mg, daily

REACTIONS (16)
  - Myocardial infarction [Unknown]
  - Dysphagia [Unknown]
  - Gastrointestinal disorder [Unknown]
  - Endocrine disorder [Unknown]
  - Vitamin D decreased [Unknown]
  - Hormone level abnormal [Unknown]
  - Nausea [Unknown]
  - Oropharyngeal pain [Not Recovered/Not Resolved]
  - Sputum decreased [Unknown]
  - Hiatus hernia [Not Recovered/Not Resolved]
  - Sleep disorder [Unknown]
  - Vomiting [Unknown]
  - Blood sodium increased [Unknown]
  - Blood glucose increased [Recovered/Resolved]
  - Blood insulin increased [Unknown]
  - Reaction to preservatives [Unknown]
